FAERS Safety Report 12073455 (Version 11)
Quarter: 2018Q2

REPORT INFORMATION
  Report Type: Report from Study
  Country: US (occurrence: US)
  Receive Date: 20160212
  Receipt Date: 20180604
  Transmission Date: 20180711
  Serious: Yes (Hospitalization, Other)
  Sender: FDA-Public Use
  Company Number: US-ACTELION-A-NJ2016-131181

PATIENT
  Age: 67 Year
  Sex: Female
  Weight: 50.79 kg

DRUGS (7)
  1. REMODULIN [Suspect]
     Active Substance: TREPROSTINIL
     Indication: PRODUCT USED FOR UNKNOWN INDICATION
     Dosage: 87 NG/KG, PER MIN
     Route: 065
  2. OXYGEN. [Concomitant]
     Active Substance: OXYGEN
  3. OPSUMIT [Suspect]
     Active Substance: MACITENTAN
     Indication: PULMONARY ARTERIAL HYPERTENSION
     Dosage: 10 MG, QD
     Route: 048
     Dates: start: 20150630
  4. REVATIO [Concomitant]
     Active Substance: SILDENAFIL CITRATE
  5. ELIQUIS [Concomitant]
     Active Substance: APIXABAN
  6. REMODULIN [Suspect]
     Active Substance: TREPROSTINIL
     Dosage: 99 NG/KG, PER MIN
     Route: 065
  7. WARFARIN [Concomitant]
     Active Substance: WARFARIN

REACTIONS (22)
  - Oxygen saturation decreased [Unknown]
  - Secretion discharge [Unknown]
  - Vomiting [Unknown]
  - Nausea [Unknown]
  - Abdominal discomfort [Recovered/Resolved]
  - Dyspnoea [Unknown]
  - Chest pain [Unknown]
  - Urinary tract infection [Unknown]
  - Blood pressure decreased [Unknown]
  - Sinusitis [Unknown]
  - Renal failure [Recovering/Resolving]
  - Oxygen saturation abnormal [Unknown]
  - Feeling abnormal [Unknown]
  - Pulmonary oedema [Unknown]
  - Dialysis [Unknown]
  - Arteriovenous shunt operation [Unknown]
  - Asthenia [Unknown]
  - Diarrhoea [Unknown]
  - Incorrect dose administered [Unknown]
  - Pulmonary hypertension [Unknown]
  - Dizziness [Unknown]
  - Peripheral swelling [Unknown]
